FAERS Safety Report 13689588 (Version 2)
Quarter: 2017Q4

REPORT INFORMATION
  Report Type: Spontaneous
  Country: IN (occurrence: IN)
  Receive Date: 20170626
  Receipt Date: 20171218
  Transmission Date: 20180320
  Serious: Yes (Life-Threatening, Hospitalization, Other)
  Sender: FDA-Public Use
  Company Number: IN-VALIDUS PHARMACEUTICALS LLC-IN-2017VAL000944

PATIENT
  Age: 45 Year
  Sex: Female

DRUGS (5)
  1. DIGOXIN. [Suspect]
     Active Substance: DIGOXIN
     Indication: MITRAL VALVE STENOSIS
     Dosage: 0.25 MG, QD
     Route: 065
  2. AMIODARONE                         /00133102/ [Suspect]
     Active Substance: AMIODARONE
     Indication: ARRHYTHMIA
     Dosage: 510 MG, EVERY 6 HOURS
     Route: 042
  3. AMIODARONE                         /00133102/ [Suspect]
     Active Substance: AMIODARONE
     Indication: MITRAL VALVE STENOSIS
  4. ATENOLOL. [Suspect]
     Active Substance: ATENOLOL
     Indication: MITRAL VALVE STENOSIS
     Dosage: 25 MG, QD
     Route: 048
  5. FUROSEMIDE. [Suspect]
     Active Substance: FUROSEMIDE
     Indication: MITRAL VALVE STENOSIS
     Dosage: 40 MG, QD
     Route: 065

REACTIONS (7)
  - Torsade de pointes [Recovered/Resolved]
  - Dyspnoea [Recovered/Resolved]
  - Sinus bradycardia [Recovering/Resolving]
  - Electrocardiogram QT prolonged [Recovered/Resolved]
  - Electrocardiogram R on T phenomenon [Recovered/Resolved]
  - Atrial flutter [Recovered/Resolved]
  - Ventricular tachycardia [Recovered/Resolved]
